FAERS Safety Report 23618399 (Version 2)
Quarter: 2024Q1

REPORT INFORMATION
  Report Type: Spontaneous
  Country: BE (occurrence: BE)
  Receive Date: 20240311
  Receipt Date: 20240318
  Transmission Date: 20240410
  Serious: Yes (Hospitalization)
  Sender: FDA-Public Use
  Company Number: BE-ROCHE-3507689

PATIENT
  Age: 74 Year
  Sex: Male
  Weight: 85 kg

DRUGS (41)
  1. CYCLOPHOSPHAMIDE [Suspect]
     Active Substance: CYCLOPHOSPHAMIDE
     Indication: Diffuse large B-cell lymphoma
     Dosage: ON 30/JAN/2024 HE RECEIVED MOST RECENT DOSE OF STUDY DRUG (1530 MG) PRIOR TO AE/SAE.
     Route: 042
     Dates: start: 20231219
  2. DOXORUBICIN [Suspect]
     Active Substance: DOXORUBICIN
     Indication: Diffuse large B-cell lymphoma
     Dosage: ON 30/JAN/2024 HE RECEIVED MOST RECENT DOSE OF STUDY DRUG (102 MG) PRIOR TO AE/SAE.
     Route: 042
     Dates: start: 20231219
  3. GLOFITAMAB [Suspect]
     Active Substance: GLOFITAMAB
     Indication: Diffuse large B-cell lymphoma
     Dosage: ON 06/FEB/2024 HE RECEIVED MOST RECENT DOSE OF STUDY DRUG (30 MG) PRIOR TO AE/SAE.
     Route: 042
     Dates: start: 20240116
  4. METHYLPREDNISOLONE [Suspect]
     Active Substance: METHYLPREDNISOLONE
     Indication: Diffuse large B-cell lymphoma
     Dosage: ON 03/FEB/2024 HE RECEIVED MOST RECENT DOSE OF STUDY DRUG (80 MG) PRIOR TO AE/SAE.
     Route: 048
     Dates: start: 20231219
  5. POLATUZUMAB VEDOTIN [Suspect]
     Active Substance: POLATUZUMAB VEDOTIN
     Indication: Diffuse large B-cell lymphoma
     Dosage: ON 30/JAN/2024 HE RECEIVED MOST RECENT DOSE OF STUDY DRUG (153 MG) PRIOR TO AE/SAE.
     Route: 042
     Dates: start: 20231220
  6. RITUXIMAB [Suspect]
     Active Substance: RITUXIMAB
     Indication: Diffuse large B-cell lymphoma
     Dosage: ON 30/JAN/2024 HE RECEIVED MOST RECENT DOSE OF STUDY DRUG (765 MG) PRIOR TO AE/SAE.
     Route: 042
     Dates: start: 20231219
  7. ACYCLOVIR [Concomitant]
     Active Substance: ACYCLOVIR
     Indication: Product used for unknown indication
     Dosage: 400.000MG
     Route: 065
     Dates: start: 20231211
  8. BACTRIM [Concomitant]
     Active Substance: SULFAMETHOXAZOLE\TRIMETHOPRIM
     Indication: Product used for unknown indication
     Dosage: 1 U
     Route: 065
     Dates: start: 20231211
  9. BACTRIM [Concomitant]
     Active Substance: SULFAMETHOXAZOLE\TRIMETHOPRIM
     Dosage: 1 U
     Route: 065
     Dates: start: 20231211
  10. BACTRIM [Concomitant]
     Active Substance: SULFAMETHOXAZOLE\TRIMETHOPRIM
     Dosage: 1 U
     Route: 065
     Dates: start: 20231211
  11. BACTRIM [Concomitant]
     Active Substance: SULFAMETHOXAZOLE\TRIMETHOPRIM
     Dosage: 1 U
     Route: 065
     Dates: start: 20231211
  12. BACTRIM [Concomitant]
     Active Substance: SULFAMETHOXAZOLE\TRIMETHOPRIM
     Dosage: 1 U
     Route: 065
     Dates: start: 20231211
  13. BACTRIM [Concomitant]
     Active Substance: SULFAMETHOXAZOLE\TRIMETHOPRIM
     Dosage: 1 U
     Route: 065
     Dates: start: 20231211
  14. BACTRIM [Concomitant]
     Active Substance: SULFAMETHOXAZOLE\TRIMETHOPRIM
     Dosage: 1 U
     Route: 065
     Dates: start: 20231211
  15. BACTRIM [Concomitant]
     Active Substance: SULFAMETHOXAZOLE\TRIMETHOPRIM
     Dosage: 1 U
     Route: 065
     Dates: start: 20231211
  16. ENOXAPARIN SODIUM [Concomitant]
     Active Substance: ENOXAPARIN SODIUM
     Indication: Product used for unknown indication
     Dosage: 40.000MG QD
     Route: 065
     Dates: start: 20231213
  17. DAFALGAN [Concomitant]
     Active Substance: ACETAMINOPHEN
     Indication: Product used for unknown indication
     Dosage: 1000.000MG QD
     Route: 065
     Dates: start: 20240130, end: 20240130
  18. DAFALGAN [Concomitant]
     Active Substance: ACETAMINOPHEN
     Dosage: 1000.000MG QD
     Route: 065
     Dates: start: 20240109, end: 20240109
  19. DAFALGAN [Concomitant]
     Active Substance: ACETAMINOPHEN
     Dosage: 1000.000MG QD
     Route: 065
     Dates: start: 20240116, end: 20240116
  20. DAFALGAN [Concomitant]
     Active Substance: ACETAMINOPHEN
     Dosage: 1000.000MG QD
     Route: 065
     Dates: start: 20240206, end: 20240206
  21. DEXAMETHASONE [Concomitant]
     Active Substance: DEXAMETHASONE
     Indication: Product used for unknown indication
     Dosage: 20.000MG QD
     Route: 065
     Dates: start: 20240116, end: 20240116
  22. DEXAMETHASONE [Concomitant]
     Active Substance: DEXAMETHASONE
     Dosage: 20.000MG QD
     Route: 065
     Dates: start: 20240123, end: 20240123
  23. DEXAMETHASONE [Concomitant]
     Active Substance: DEXAMETHASONE
     Dosage: 20.000MG QD
     Route: 065
     Dates: start: 20240206, end: 20240206
  24. DEXAMETHASONE [Concomitant]
     Active Substance: DEXAMETHASONE
     Dosage: 4.000MG
     Route: 065
     Dates: start: 20240124, end: 20240125
  25. FOLIC ACID [Concomitant]
     Active Substance: FOLIC ACID
     Indication: Folate deficiency
     Dosage: 4.000MG QD
     Route: 065
     Dates: start: 20231208
  26. LACTULOSE [Concomitant]
     Active Substance: LACTULOSE
     Indication: Product used for unknown indication
     Dosage: UNK
     Route: 065
     Dates: start: 20240109
  27. PANTOPRAZOLE SODIUM [Concomitant]
     Active Substance: PANTOPRAZOLE SODIUM
     Indication: Product used for unknown indication
     Dosage: 20.000MG QD
     Route: 065
     Dates: start: 20231218
  28. ACETAMINOPHEN [Concomitant]
     Active Substance: ACETAMINOPHEN
     Indication: Product used for unknown indication
     Dosage: 5 MG
     Route: 065
     Dates: start: 20240130, end: 20240130
  29. PEGFILGRASTIM [Concomitant]
     Active Substance: PEGFILGRASTIM
     Indication: Product used for unknown indication
     Dosage: 6.000MG QD
     Route: 065
     Dates: start: 20240112, end: 20240112
  30. TRAMADOL [Concomitant]
     Active Substance: TRAMADOL\TRAMADOL HYDROCHLORIDE
     Indication: Pain
     Dosage: 50.000MG
     Route: 065
     Dates: start: 20240109
  31. TRAMADOL [Concomitant]
     Active Substance: TRAMADOL\TRAMADOL HYDROCHLORIDE
     Dosage: 50.000MG
     Route: 065
     Dates: start: 20240109
  32. TRAMADOL [Concomitant]
     Active Substance: TRAMADOL\TRAMADOL HYDROCHLORIDE
     Dosage: 50.000MG
     Route: 065
     Dates: start: 20240109
  33. TRAMADOL [Concomitant]
     Active Substance: TRAMADOL\TRAMADOL HYDROCHLORIDE
     Dosage: 50.000MG
     Route: 065
     Dates: start: 20240109
  34. TRAMADOL [Concomitant]
     Active Substance: TRAMADOL\TRAMADOL HYDROCHLORIDE
     Dosage: 50.000MG
     Route: 065
     Dates: start: 20240109
  35. TRAMADOL [Concomitant]
     Active Substance: TRAMADOL\TRAMADOL HYDROCHLORIDE
     Dosage: 50.000MG
     Route: 065
     Dates: start: 20240109
  36. TRAMADOL [Concomitant]
     Active Substance: TRAMADOL\TRAMADOL HYDROCHLORIDE
     Dosage: 50.000MG
     Route: 065
     Dates: start: 20240109
  37. VIREAD [Concomitant]
     Active Substance: TENOFOVIR DISOPROXIL FUMARATE
     Indication: Product used for unknown indication
     Dosage: 245.000MG QD
     Route: 065
     Dates: start: 20240109
  38. LEVOCETIRIZINE DIHYDROCHLORIDE [Concomitant]
     Active Substance: LEVOCETIRIZINE DIHYDROCHLORIDE
     Indication: Product used for unknown indication
     Dosage: 5.000MG QD
     Route: 065
     Dates: start: 20240206, end: 20240206
  39. LEVOCETIRIZINE DIHYDROCHLORIDE [Concomitant]
     Active Substance: LEVOCETIRIZINE DIHYDROCHLORIDE
     Dosage: 5.000MG QD
     Route: 065
     Dates: start: 20240109, end: 20240109
  40. LEVOCETIRIZINE DIHYDROCHLORIDE [Concomitant]
     Active Substance: LEVOCETIRIZINE DIHYDROCHLORIDE
     Dosage: 5.000MG QD
     Route: 065
     Dates: start: 20240116, end: 20240116
  41. LEVOCETIRIZINE DIHYDROCHLORIDE [Concomitant]
     Active Substance: LEVOCETIRIZINE DIHYDROCHLORIDE
     Dosage: 5.000MG QD
     Route: 065
     Dates: start: 20240130, end: 20240130

REACTIONS (2)
  - Cytokine release syndrome [Recovered/Resolved]
  - Febrile neutropenia [Recovered/Resolved]

NARRATIVE: CASE EVENT DATE: 20240207
